FAERS Safety Report 4447597-3 (Version None)
Quarter: 2004Q3

REPORT INFORMATION
  Report Type: 
  Country: None (occurrence: None)
  Receive Date: 20040823
  Receipt Date: 20040630
  Transmission Date: 20050211
  Serious: No
  Sender: FDA-Public Use
  Company Number: PHEH2004US06923

PATIENT
  Age: 21 Year
  Sex: Male

DRUGS (2)
  1. ZELNORM [Suspect]
     Indication: IRRITABLE BOWEL SYNDROME
     Dosage: 2 MG, QD, ORAL
     Route: 048
     Dates: start: 20040601, end: 20040626
  2. WELLBUTRIN SR [Suspect]
     Dosage: 200 MG, 6QD
     Dates: start: 20040616

REACTIONS (3)
  - DRUG INTERACTION [None]
  - PALPITATIONS [None]
  - THROAT TIGHTNESS [None]
